FAERS Safety Report 22016301 (Version 1)
Quarter: 2023Q1

REPORT INFORMATION
  Report Type: Spontaneous
  Country: LT (occurrence: LT)
  Receive Date: 20230221
  Receipt Date: 20230221
  Transmission Date: 20230418
  Serious: Yes (Hospitalization, Other)
  Sender: FDA-Public Use
  Company Number: LT-Orion Corporation ORION PHARMA-OLAA2021-0005

PATIENT
  Age: 21 Year
  Sex: Male

DRUGS (37)
  1. AMOXICILLIN [Suspect]
     Active Substance: AMOXICILLIN
     Indication: Antibiotic therapy
     Dosage: 1500 MG, QD 14TH TO 20TH DAY
     Route: 048
  2. AMOXICILLIN [Suspect]
     Active Substance: AMOXICILLIN
     Indication: Oral mucosal eruption
  3. AMOXICILLIN [Suspect]
     Active Substance: AMOXICILLIN
     Indication: Inflammatory marker increased
  4. AMOXICILLIN [Suspect]
     Active Substance: AMOXICILLIN
     Indication: Oropharyngeal pain
  5. DIAZEPAM [Suspect]
     Active Substance: DIAZEPAM
     Indication: Aggression
     Dosage: 15 MG, QD (1ST DAY TO 32ND DAY)
     Route: 048
  6. DIAZEPAM [Suspect]
     Active Substance: DIAZEPAM
     Indication: Persecutory delusion
     Dosage: 15 MG, QD (36TH DAY TO 42ND DAY)
     Route: 048
  7. DIAZEPAM [Suspect]
     Active Substance: DIAZEPAM
     Indication: Psychotic symptom
  8. DIAZEPAM [Suspect]
     Active Substance: DIAZEPAM
     Indication: Psychomotor hyperactivity
  9. CEFUROXIME AXETIL [Suspect]
     Active Substance: CEFUROXIME AXETIL
     Indication: Inflammatory marker increased
     Dosage: 4.5 MILLIGRAM, QD, 22ND DAY TO 39TH DAY
     Route: 042
  10. CEFUROXIME AXETIL [Suspect]
     Active Substance: CEFUROXIME AXETIL
     Indication: Sinusitis
  11. CARBAMAZEPINE [Suspect]
     Active Substance: CARBAMAZEPINE
     Indication: Psychotic symptom
     Dosage: 300 MG, QD, 11TH DAY
     Route: 048
  12. CARBAMAZEPINE [Suspect]
     Active Substance: CARBAMAZEPINE
     Dosage: 900 MG, QD 16TH DAY
     Route: 048
  13. CARBAMAZEPINE [Suspect]
     Active Substance: CARBAMAZEPINE
     Dosage: 600 MG, QD 14TH DAY
     Route: 048
  14. CIPROFLOXACIN [Suspect]
     Active Substance: CIPROFLOXACIN
     Indication: Inflammatory marker increased
     Dosage: 800 MILLIGRAM, 35TH TO 39TH DAY
     Route: 042
  15. CIPROFLOXACIN [Suspect]
     Active Substance: CIPROFLOXACIN
     Indication: Rash
     Dosage: 400 MILLIGRAM, 31ST DAY
     Route: 042
  16. QUETIAPINE [Suspect]
     Active Substance: QUETIAPINE
     Indication: Psychotic symptom
     Dosage: 500 MG, QD
     Route: 048
  17. QUETIAPINE [Suspect]
     Active Substance: QUETIAPINE
     Dosage: 300 MG, QD
     Route: 048
  18. LORATADINE [Suspect]
     Active Substance: LORATADINE
     Indication: Rash
     Dosage: 10 MG, QD
     Route: 048
  19. LORATADINE [Suspect]
     Active Substance: LORATADINE
     Indication: Rash
     Dosage: 20 MG, QD
     Route: 048
  20. LORATADINE [Suspect]
     Active Substance: LORATADINE
     Indication: Dermatitis allergic
  21. HALOPERIDOL [Suspect]
     Active Substance: HALOPERIDOL
     Indication: Psychomotor hyperactivity
     Dosage: UNK, QD, 1ST TO 23TH DAY
     Route: 065
  22. HALOPERIDOL [Suspect]
     Active Substance: HALOPERIDOL
     Indication: Psychomotor hyperactivity
     Dosage: 20 MG, QD (36TH TO 42ND DAY)
     Route: 065
  23. HALOPERIDOL [Suspect]
     Active Substance: HALOPERIDOL
     Indication: Psychotic symptom
  24. HALOPERIDOL [Suspect]
     Active Substance: HALOPERIDOL
     Indication: Persecutory delusion
  25. DEXAMETHASONE [Suspect]
     Active Substance: DEXAMETHASONE
     Indication: Dermatitis allergic
     Dosage: 12 MILLIGRAM, 32ND TO 39TH DAY
     Route: 042
  26. DEXAMETHASONE [Suspect]
     Active Substance: DEXAMETHASONE
     Indication: Rash
  27. TRIHEXYPHENIDYL [Suspect]
     Active Substance: TRIHEXYPHENIDYL
     Indication: Extrapyramidal disorder
     Dosage: 6 MG, QD 39TH DAY
     Route: 048
  28. TRIHEXYPHENIDYL [Suspect]
     Active Substance: TRIHEXYPHENIDYL
     Indication: Aggression
     Dosage: 8 MG, QD 42ND DAY
     Route: 065
  29. TRIHEXYPHENIDYL [Suspect]
     Active Substance: TRIHEXYPHENIDYL
     Indication: Psychomotor hyperactivity
     Dosage: 4 MG, QD (1ST DAY TO 32ND DAY)
     Route: 065
  30. TRIHEXYPHENIDYL [Suspect]
     Active Substance: TRIHEXYPHENIDYL
     Indication: Psychotic symptom
     Dosage: 4 MG, QD (35TH DAY)
     Route: 065
  31. TRIHEXYPHENIDYL [Suspect]
     Active Substance: TRIHEXYPHENIDYL
     Indication: Persecutory delusion
  32. CLEMASTINE [Suspect]
     Active Substance: CLEMASTINE
     Indication: Viral infection
     Dosage: 2 MG, QD (20TH TO 39TH DAY)
     Route: 048
  33. IBUPROFEN [Suspect]
     Active Substance: IBUPROFEN
     Indication: Pyrexia
     Dosage: 400 MG, QD 31ST DAY
     Route: 048
  34. OLANZAPINE [Suspect]
     Active Substance: OLANZAPINE
     Indication: Psychotic symptom
     Dosage: 15 MG, QD
     Route: 048
  35. OLANZAPINE [Suspect]
     Active Substance: OLANZAPINE
     Indication: Persecutory delusion
     Dosage: 20 MG, QD
     Route: 048
  36. OLANZAPINE [Suspect]
     Active Substance: OLANZAPINE
     Indication: Psychomotor hyperactivity
     Dosage: 20 MG, QD 8TH HOSPITALISATION DAY
     Route: 048
  37. OLANZAPINE [Suspect]
     Active Substance: OLANZAPINE
     Dosage: 15 MG, QD 35TH DAY
     Route: 048

REACTIONS (9)
  - Extrapyramidal disorder [Recovered/Resolved]
  - Extrapyramidal disorder [Unknown]
  - Drug reaction with eosinophilia and systemic symptoms [Recovered/Resolved]
  - Hepatic enzyme increased [Not Recovered/Not Resolved]
  - Acute hepatic failure [Unknown]
  - Pyrexia [Unknown]
  - Splenomegaly [Unknown]
  - Acute hepatic failure [Unknown]
  - Lymphadenopathy [Unknown]
